FAERS Safety Report 4934005-9 (Version None)
Quarter: 2006Q1

REPORT INFORMATION
  Report Type: 
  Country: None (occurrence: None)
  Receive Date: 20060307
  Receipt Date: 20060224
  Transmission Date: 20060701
  Serious: Yes (Death)
  Sender: FDA-Public Use
  Company Number: US-JNJFOC-20060204215

PATIENT
  Sex: Female
  Weight: 97.98 kg

DRUGS (1)
  1. ULTRACET [Suspect]
     Indication: PAIN

REACTIONS (1)
  - CARDIAC FAILURE CONGESTIVE [None]
